FAERS Safety Report 8574021-1 (Version None)
Quarter: 2012Q2

REPORT INFORMATION
  Report Type: 
  Country: None (occurrence: None)
  Receive Date: 20120423
  Receipt Date: 20100525
  Transmission Date: 20120825
  Serious: Yes (Other)
  Sender: FDA-Public Use
  Company Number: PHHY2010US29949

PATIENT
  Sex: Male
  Weight: 70.5 kg

DRUGS (1)
  1. EXJADE [Suspect]
     Indication: APLASTIC ANAEMIA
     Dosage: 1000 MG, ORAL 1 TAB EVERY OTHER DAY ALTERING WITH 2 TABS ON THE OPPOSITE DAYS
     Route: 048

REACTIONS (1)
  - RENAL IMPAIRMENT [None]
